FAERS Safety Report 8986324 (Version 1)
Quarter: 2012Q4

REPORT INFORMATION
  Report Type: Spontaneous
  Country: US (occurrence: None)
  Receive Date: 20121107
  Receipt Date: 20121107
  Transmission Date: 20130627
  Serious: Yes (Hospitalization)
  Sender: FDA-Public Use
  Company Number: 2012-1115

PATIENT
  Age: 70 Year
  Sex: Male

DRUGS (5)
  1. KYPROLIS [Suspect]
     Indication: MULTIPLE MYELOMA
     Dates: start: 20120925
  2. ZOMETA [Concomitant]
  3. TOPROL [Concomitant]
  4. DURAGESIC [Concomitant]
  5. HYDROCODONE [Concomitant]

REACTIONS (5)
  - Blood pressure decreased [None]
  - Chills [None]
  - Pyrexia [None]
  - Anaemia [None]
  - Atrial fibrillation [None]
